FAERS Safety Report 9657838 (Version 3)
Quarter: 2014Q3

REPORT INFORMATION
  Report Type: Spontaneous
  Country: US (occurrence: US)
  Receive Date: 20131030
  Receipt Date: 20140818
  Transmission Date: 20150326
  Serious: Yes (Hospitalization)
  Sender: FDA-Public Use
  Company Number: US-009507513-1310USA013240

PATIENT
  Sex: Female

DRUGS (1)
  1. NUVARING [Suspect]
     Active Substance: ETHINYL ESTRADIOL\ETONOGESTREL
     Indication: CONTRACEPTION
     Dosage: INSERT 1 RING VAGINALLY FOR 3 WEEKS EVERY MONTH
     Route: 067
     Dates: start: 20050217, end: 20060118

REACTIONS (12)
  - Contusion [Recovered/Resolved]
  - Muscle spasms [Recovered/Resolved]
  - Muscle rupture [Recovered/Resolved]
  - Muscle injury [Unknown]
  - Thrombophlebitis [Unknown]
  - Deep vein thrombosis [Unknown]
  - Embolism venous [Unknown]
  - Arthralgia [Unknown]
  - Urinary tract infection [Unknown]
  - Deep vein thrombosis [Unknown]
  - Hyperglycaemia [Unknown]
  - Poor quality sleep [Unknown]

NARRATIVE: CASE EVENT DATE: 200506
